FAERS Safety Report 6585552 (Version 7)
Quarter: 2017Q1

REPORT INFORMATION
  Report Type: Spontaneous
  Country: JP (occurrence: JP)
  Receive Date: 20080317
  Receipt Date: 20170228
  Transmission Date: 20170429
  Serious: Yes (Death, Hospitalization, Other)
  Sender: FDA-Public Use
  Company Number: JP-BRISTOL-MYERS SQUIBB COMPANY-14116081

PATIENT
  Age: 73 Year
  Sex: Female

DRUGS (4)
  1. TAXOL [Suspect]
     Active Substance: PACLITAXEL
     Indication: OVARIAN CANCER
     Dosage: DOSE VALUE:  157.5MG: UNK TO UNK  135.0MG: UNK TO UNK  131.25MG/M2 UNK-UNK  135MG/M2 UNK-UNK
     Route: 041
  2. PARAPLATIN [Suspect]
     Active Substance: CARBOPLATIN
     Indication: OVARIAN CANCER
     Dosage: DOSE:  200 MG: UNK TO UNK  120 MG: UNK TO UNK
     Route: 041
  3. PARAPLATIN [Suspect]
     Active Substance: CARBOPLATIN
     Indication: OVARIAN EPITHELIAL CANCER
     Route: 065
  4. TAXOL [Suspect]
     Active Substance: PACLITAXEL
     Indication: OVARIAN EPITHELIAL CANCER
     Route: 065

REACTIONS (6)
  - Myelodysplastic syndrome [Unknown]
  - Acute megakaryocytic leukaemia [Fatal]
  - Urinary tract infection [Unknown]
  - Febrile neutropenia [Unknown]
  - Pancytopenia [Unknown]
  - Renal failure [Unknown]
